FAERS Safety Report 21971969 (Version 2)
Quarter: 2023Q1

REPORT INFORMATION
  Report Type: Spontaneous
  Country: JP (occurrence: JP)
  Receive Date: 20230209
  Receipt Date: 20230224
  Transmission Date: 20230417
  Serious: Yes (Death, Life-Threatening, Hospitalization, Other)
  Sender: FDA-Public Use
  Company Number: JP-Accord-299489

PATIENT
  Age: 54 Year
  Sex: Female
  Weight: 65 kg

DRUGS (3)
  1. METHOTREXATE [Suspect]
     Active Substance: METHOTREXATE
     Indication: Rheumatoid arthritis
     Dosage: TAPERED FROM 8 TO 4MG. RECEIVED 4050MG OF MTX OVER 13 YEARS
  2. INFLIXIMAB [Concomitant]
     Active Substance: INFLIXIMAB
     Indication: Rheumatoid arthritis
     Dosage: ONCE DAILY FOR 2 TO 8 WEEKS
  3. ETANERCEPT [Concomitant]
     Active Substance: ETANERCEPT
     Indication: Rheumatoid arthritis
     Route: 058

REACTIONS (11)
  - Hepatic failure [Fatal]
  - Non-alcoholic steatohepatitis [Fatal]
  - Spider naevus [Unknown]
  - Palmar erythema [Unknown]
  - Anaemia [Unknown]
  - Steatorrhoea [Unknown]
  - Oliguria [Unknown]
  - Thrombocytopenia [Unknown]
  - Drug-induced liver injury [Fatal]
  - Splenomegaly [Unknown]
  - Varices oesophageal [Unknown]
